FAERS Safety Report 8559380-8 (Version None)
Quarter: 2012Q3

REPORT INFORMATION
  Report Type: 
  Country: None (occurrence: None)
  Receive Date: 20120802
  Receipt Date: 20120723
  Transmission Date: 20120928
  Serious: Yes (Death)
  Sender: FDA-Public Use
  Company Number: BR-BAYER-2012-073892

PATIENT
  Sex: Male
  Weight: 59.864 kg

DRUGS (5)
  1. SORAFENIB (RAF KINASE INHIBITOR) [Suspect]
     Dosage: 400 MG, BID
     Dates: start: 20120401
  2. NAPRIX [HYDROCHLOROTHIAZIDE,RAMIPRIL] [Concomitant]
     Indication: HYPERTENSION
     Dosage: UNK
     Route: 048
     Dates: start: 20111001
  3. SORAFENIB (RAF KINASE INHIBITOR) [Suspect]
     Indication: HEPATIC NEOPLASM MALIGNANT
     Dosage: 400 MG, BID
     Route: 048
     Dates: start: 20111215, end: 20111220
  4. SORAFENIB (RAF KINASE INHIBITOR) [Suspect]
     Dosage: 200 MG, BID
     Dates: end: 20120530
  5. TAMSULOSIN HCL [Concomitant]
     Indication: PROSTATOMEGALY
     Dosage: 0.4 MG, QD
     Route: 048
     Dates: start: 20111001

REACTIONS (4)
  - WEIGHT DECREASED [None]
  - HEPATIC NEOPLASM MALIGNANT [None]
  - BLOOD CHOLESTEROL ABNORMAL [None]
  - HEPATIC ENZYME ABNORMAL [None]
